FAERS Safety Report 4482102-7 (Version None)
Quarter: 2004Q4

REPORT INFORMATION
  Report Type: 
  Country: None (occurrence: None)
  Receive Date: 20041020
  Receipt Date: 20040930
  Transmission Date: 20050328
  Serious: Yes (Hospitalization)
  Sender: FDA-Public Use
  Company Number: USA040979752

PATIENT
  Age: 79 Year
  Sex: Male
  Weight: 61 kg

DRUGS (1)
  1. FORTEO [Suspect]
     Indication: BONE DISORDER
     Dosage: 20 UG/1 DAY
     Dates: start: 20040824, end: 20040824

REACTIONS (4)
  - BLOOD TEST ABNORMAL [None]
  - DYSPNOEA [None]
  - PHARMACEUTICAL PRODUCT COMPLAINT [None]
  - WEIGHT DECREASED [None]
